FAERS Safety Report 16956342 (Version 4)
Quarter: 2019Q4

REPORT INFORMATION
  Report Type: Spontaneous
  Country: US (occurrence: US)
  Receive Date: 20191024
  Receipt Date: 20191230
  Transmission Date: 20200122
  Serious: No
  Sender: FDA-Public Use
  Company Number: US-PFIZER INC-2018340713

PATIENT
  Age: 53 Year
  Sex: Female
  Weight: 116 kg

DRUGS (3)
  1. TOVIAZ [Suspect]
     Active Substance: FESOTERODINE FUMARATE
     Indication: HYPERTONIC BLADDER
     Dosage: 4 MG, 2X/DAY
  2. TOVIAZ [Suspect]
     Active Substance: FESOTERODINE FUMARATE
     Dosage: 4 MG, 2X/DAY
     Route: 048
     Dates: start: 2018
  3. TOVIAZ [Suspect]
     Active Substance: FESOTERODINE FUMARATE
     Indication: BLADDER SPASM
     Dosage: 8 MG, UNK

REACTIONS (7)
  - Product dose omission [Unknown]
  - Pain [Unknown]
  - Urinary tract infection [Unknown]
  - Product use issue [Recovered/Resolved]
  - Off label use [Recovered/Resolved]
  - Enuresis [Recovering/Resolving]
  - Pollakiuria [Unknown]

NARRATIVE: CASE EVENT DATE: 2018
